FAERS Safety Report 7214731-1 (Version None)
Quarter: 2011Q1

REPORT INFORMATION
  Report Type: 
  Country: None (occurrence: None)
  Receive Date: 20110107
  Receipt Date: 20100408
  Transmission Date: 20110831
  Serious: No
  Sender: FDA-Public Use
  Company Number: A0838756A

PATIENT
  Sex: Male

DRUGS (10)
  1. LOVAZA [Suspect]
     Dosage: 2TAB TWICE PER DAY
     Route: 048
  2. ZEGERID [Concomitant]
  3. ADVAIR [Concomitant]
  4. MULTIVITAMIN [Concomitant]
  5. ENALAPRIL [Concomitant]
  6. ASPIRIN [Concomitant]
  7. METOPROLOL [Concomitant]
  8. CRESTOR [Concomitant]
  9. METAMUCIL-2 [Concomitant]
  10. INSULIN [Concomitant]

REACTIONS (3)
  - FLATULENCE [None]
  - ERUCTATION [None]
  - PRODUCT QUALITY ISSUE [None]
